FAERS Safety Report 23982535 (Version 3)
Quarter: 2024Q4

REPORT INFORMATION
  Report Type: Spontaneous
  Country: JP (occurrence: JP)
  Receive Date: 20240617
  Receipt Date: 20241001
  Transmission Date: 20250115
  Serious: Yes (Other)
  Sender: OTSUKA
  Company Number: JP-OTSUKA-2024_016972

PATIENT
  Age: 9 Decade
  Sex: Male

DRUGS (1)
  1. SAMSCA [Suspect]
     Active Substance: TOLVAPTAN
     Indication: Hepatic cirrhosis
     Dosage: UNK
     Route: 048

REACTIONS (1)
  - Pancytopenia [Unknown]
